FAERS Safety Report 8617096-3 (Version None)
Quarter: 2012Q3

REPORT INFORMATION
  Report Type: 
  Country: None (occurrence: None)
  Receive Date: 20120823
  Receipt Date: 20120820
  Transmission Date: 20120928
  Serious: No
  Sender: FDA-Public Use
  Company Number: US-009507513-1208USA008639

PATIENT

DRUGS (3)
  1. ABILIFY [Concomitant]
     Dosage: UNK
  2. SAPHRIS [Suspect]
     Indication: SCHIZOPHRENIA
     Dosage: 5 MG, BID
     Route: 060
     Dates: start: 20120801
  3. TRILAFON (PERPHENAZINE DECANOATE) [Concomitant]
     Dosage: UNK
     Dates: end: 20120801

REACTIONS (1)
  - PSYCHOTIC DISORDER [None]
